FAERS Safety Report 6257906-0 (Version None)
Quarter: 2009Q3

REPORT INFORMATION
  Report Type: 
  Country: None (occurrence: None)
  Receive Date: 20090707
  Receipt Date: 20090623
  Transmission Date: 20100115
  Serious: Yes (Other)
  Sender: FDA-Public Use
  Company Number: JP-PFIZER INC-2009225136

PATIENT
  Sex: Female

DRUGS (4)
  1. NORVASC [Suspect]
     Indication: BLOOD PRESSURE INCREASED
     Dosage: 5 MG, 1X/DAY
     Dates: start: 20090420, end: 20090603
  2. GLYBURIDE [Concomitant]
     Route: 048
     Dates: start: 20090520
  3. GRAMALIL [Concomitant]
     Route: 048
     Dates: start: 20090427
  4. BIOFERMIN [Concomitant]
     Route: 048
     Dates: start: 20090520

REACTIONS (4)
  - ALANINE AMINOTRANSFERASE INCREASED [None]
  - ASPARTATE AMINOTRANSFERASE INCREASED [None]
  - BLOOD LACTATE DEHYDROGENASE INCREASED [None]
  - GAMMA-GLUTAMYLTRANSFERASE INCREASED [None]
